FAERS Safety Report 19893776 (Version 1)
Quarter: 2021Q3

REPORT INFORMATION
  Report Type: Report from Study
  Country: US (occurrence: US)
  Receive Date: 20210928
  Receipt Date: 20210928
  Transmission Date: 20211014
  Serious: Yes (Death)
  Sender: FDA-Public Use
  Company Number: US-UCBSA-2021044837

PATIENT
  Age: 74 Year
  Sex: Male

DRUGS (1)
  1. LACOSAMIDE. [Suspect]
     Active Substance: LACOSAMIDE
     Indication: SEIZURE
     Dosage: 1.5 TABLET OF 150MG TWICE DAILY
     Dates: end: 20210902

REACTIONS (4)
  - Parkinson^s disease [Fatal]
  - Overdose [Unknown]
  - Feeding disorder [Unknown]
  - Cardiac failure congestive [Fatal]

NARRATIVE: CASE EVENT DATE: 202108
